FAERS Safety Report 15698862 (Version 2)
Quarter: 2019Q1

REPORT INFORMATION
  Report Type: Spontaneous
  Country: US (occurrence: US)
  Receive Date: 20181207
  Receipt Date: 20190102
  Transmission Date: 20190417
  Serious: Yes (Hospitalization)
  Sender: FDA-Public Use
  Company Number: US-PFIZER INC-2018495567

PATIENT
  Age: 66 Year
  Sex: Male

DRUGS (1)
  1. TESTOSTERONE CIPIONATE [Suspect]
     Active Substance: TESTOSTERONE
     Dosage: 0.5 ML, WEEKLY

REACTIONS (4)
  - Irritability [Recovered/Resolved]
  - Pruritus [Recovered/Resolved]
  - Drug hypersensitivity [Recovered/Resolved]
  - Headache [Recovered/Resolved]
